FAERS Safety Report 4761894-3 (Version None)
Quarter: 2005Q3

REPORT INFORMATION
  Report Type: 
  Country: None (occurrence: None)
  Receive Date: 20050906
  Receipt Date: 20050824
  Transmission Date: 20060218
  Serious: Yes (Death, Life-Threatening, Hospitalization)
  Sender: FDA-Public Use
  Company Number: SP-200000505

PATIENT
  Sex: Male
  Weight: 69.5 kg

DRUGS (8)
  1. REMICADE [Suspect]
     Route: 041
  2. REMICADE [Suspect]
     Indication: CROHN'S DISEASE
     Route: 041
  3. IMURAN [Concomitant]
     Route: 065
  4. PREDNISONE [Concomitant]
     Route: 065
  5. CIPROFLOXACIN [Concomitant]
     Route: 065
  6. ASACOL [Concomitant]
     Route: 065
  7. AZATHIOPRINE [Concomitant]
     Route: 065
  8. LOPRESSOR [Concomitant]

REACTIONS (14)
  - ASTHENIA [None]
  - CHILLS [None]
  - DIARRHOEA [None]
  - DISSEMINATED INTRAVASCULAR COAGULATION [None]
  - DRUG INEFFECTIVE [None]
  - FATIGUE [None]
  - GASTROINTESTINAL HAEMORRHAGE [None]
  - ILIAC VEIN THROMBOSIS [None]
  - INFLUENZA LIKE ILLNESS [None]
  - IRON DEFICIENCY ANAEMIA [None]
  - MALAISE [None]
  - PROCTALGIA [None]
  - PULMONARY EMBOLISM [None]
  - PYREXIA [None]
